FAERS Safety Report 14459482 (Version 2)
Quarter: 2018Q1

REPORT INFORMATION
  Report Type: Spontaneous
  Country: TR (occurrence: TR)
  Receive Date: 20180130
  Receipt Date: 20180220
  Transmission Date: 20180509
  Serious: Yes (Other)
  Sender: FDA-Public Use
  Company Number: TR-UCBSA-2018002148

PATIENT
  Sex: Male
  Weight: 72 kg

DRUGS (1)
  1. KEPPRA [Suspect]
     Active Substance: LEVETIRACETAM
     Indication: EPILEPSY
     Dosage: 1000 MG, UNK
     Route: 048

REACTIONS (4)
  - Seizure [Unknown]
  - Status epilepticus [Unknown]
  - Change in seizure presentation [Unknown]
  - Mental disorder [Unknown]
